FAERS Safety Report 5758362-9 (Version None)
Quarter: 2008Q2

REPORT INFORMATION
  Report Type: 
  Country: None (occurrence: None)
  Receive Date: 20080530
  Receipt Date: 20080519
  Transmission Date: 20081010
  Serious: Yes (Other)
  Sender: FDA-Public Use
  Company Number: DSU-2008-00741

PATIENT
  Age: 74 Year
  Sex: Female

DRUGS (6)
  1. OLMETEC HCT(HYDROCHLOROTHIAZIDE, OLMESARTAN MEDOXOMIL)(TABLET)(HYDROCH [Suspect]
     Indication: DRUG USE FOR UNKNOWN INDICATION
     Dosage: 20/12.5 MG (QD), PER ORAL
     Route: 048
     Dates: end: 20080120
  2. LIPITOR [Suspect]
     Indication: DRUG USE FOR UNKNOWN INDICATION
     Dosage: 10 MG (10 MG,QD),PER ORAL
     Dates: end: 20080120
  3. HIDROCLOROTIAZIDA (HYDROCHLOROTHIAZIDE)(25 MILLIGRAM, TABLET)(HYDROCHL [Concomitant]
  4. ASA (ACETYLSALICYLIC ACID) (100 MILLIGRAM, TABLET) (ACETYLSALICYLIC AC [Concomitant]
  5. VERAPAMILO(VERAPAMIL) (80 MILLIGRAM, TABLET)(VERAPAMIL) [Concomitant]
  6. LOVASTATINA (LOVASTATIN) (20 MILLIGRAM, TABLET) (LOVASTATIN) [Concomitant]

REACTIONS (3)
  - ERYTHEMA [None]
  - FEELING HOT [None]
  - PRURITUS [None]
